FAERS Safety Report 25102068 (Version 1)
Quarter: 2025Q1

REPORT INFORMATION
  Report Type: Spontaneous
  Country: GR (occurrence: GR)
  Receive Date: 20250320
  Receipt Date: 20250320
  Transmission Date: 20250408
  Serious: Yes (Hospitalization)
  Sender: Alora Pharma
  Company Number: GR-AVION PHARMACEUTICALS-2025ALO00117

PATIENT
  Age: 52 Year
  Sex: Male

DRUGS (2)
  1. CARBIDOPA LEVODOPA [Suspect]
     Active Substance: CARBIDOPA\LEVODOPA
     Indication: Parkinson^s disease
  2. QUETIAPINE [Concomitant]
     Active Substance: QUETIAPINE
     Indication: Parkinson^s disease

REACTIONS (1)
  - Parkinsonism hyperpyrexia syndrome [None]
